FAERS Safety Report 5308099-5 (Version None)
Quarter: 2007Q2

REPORT INFORMATION
  Report Type: 
  Country: None (occurrence: None)
  Receive Date: 20070426
  Receipt Date: 20070416
  Transmission Date: 20071010
  Serious: Yes (Hospitalization, Disabling)
  Sender: FDA-Public Use
  Company Number: PHBS2007JP05061

PATIENT
  Age: 75 Year
  Sex: Female

DRUGS (5)
  1. RESCULA [Suspect]
     Indication: OPEN ANGLE GLAUCOMA
     Dosage: 4 DROPS
     Dates: start: 19980101
  2. SANPILO [Suspect]
     Indication: GLAUCOMA
     Dosage: 8 DROPS
     Dates: start: 19980101, end: 20000831
  3. PIVALEPHRINE [Suspect]
     Indication: GLAUCOMA
     Dosage: 8 DROPS
     Dates: start: 19980101, end: 20000831
  4. BETOPTIC [Suspect]
     Indication: GLAUCOMA
     Dosage: 4 DROPS
     Dates: start: 19980101, end: 20000831
  5. HYALEIN [Concomitant]
     Indication: PUNCTATE KERATITIS
     Dosage: 16 DROPS
     Dates: start: 19980401

REACTIONS (7)
  - CONJUNCTIVAL DISORDER [None]
  - CORNEAL OPACITY [None]
  - CORNEAL OPERATION [None]
  - HYPOPYON [None]
  - PEMPHIGOID [None]
  - SYMBLEPHARON [None]
  - ULCERATIVE KERATITIS [None]
